FAERS Safety Report 5065433-1 (Version None)
Quarter: 2006Q3

REPORT INFORMATION
  Report Type: 
  Country: None (occurrence: None)
  Receive Date: 20060725
  Receipt Date: 20060621
  Transmission Date: 20061208
  Serious: Yes (Hospitalization)
  Sender: FDA-Public Use
  Company Number: 2006R1-02761

PATIENT
  Age: 6 Year
  Sex: Male

DRUGS (3)
  1. AMOXICILLIN-CLAVULANATE POTASSIUM (CLAVULANIC ACID, AMOXICILLIN TRIHYD [Suspect]
     Dosage: 7.5 ML, BID, ORAL
     Route: 048
     Dates: start: 20060618, end: 20060624
  2. ALGINA [Concomitant]
  3. MULTI-VITAMIN [Concomitant]

REACTIONS (5)
  - DYSENTERY [None]
  - LOSS OF CONSCIOUSNESS [None]
  - NAUSEA [None]
  - PHARMACEUTICAL PRODUCT COMPLAINT [None]
  - VOMITING [None]
